FAERS Safety Report 24616766 (Version 1)
Quarter: 2024Q4

REPORT INFORMATION
  Report Type: Spontaneous
  Country: US (occurrence: US)
  Receive Date: 20241114
  Receipt Date: 20241114
  Transmission Date: 20250115
  Serious: No
  Sender: OTSUKA
  Company Number: US-OTSUKA-2024_000231

PATIENT
  Sex: Male
  Weight: 89.81 kg

DRUGS (3)
  1. NUEDEXTA [Suspect]
     Active Substance: DEXTROMETHORPHAN HYDROBROMIDE\QUINIDINE SULFATE
     Indication: Dementia
     Dosage: 1 DF, BID (ONE IN THE MORNING AND ONE IN THE AFTERNOON (EVERY 12 HOURS))
     Route: 065
  2. MEMANTINE [Concomitant]
     Active Substance: MEMANTINE
     Dosage: 10MG TWICE A DAY
     Route: 065
  3. DONEPEZIL [Concomitant]
     Active Substance: DONEPEZIL
     Indication: Memory impairment
     Dosage: 10 MG, QD
     Route: 065

REACTIONS (7)
  - Confusional state [Unknown]
  - Feeling abnormal [Unknown]
  - Abnormal dreams [Unknown]
  - Sleep disorder [Unknown]
  - Nervousness [Unknown]
  - Product use in unapproved indication [Unknown]
  - Therapy interrupted [Unknown]
